FAERS Safety Report 5879403-4 (Version None)
Quarter: 2008Q3

REPORT INFORMATION
  Report Type: 
  Country: None (occurrence: None)
  Receive Date: 20080912
  Receipt Date: 20080902
  Transmission Date: 20090109
  Serious: Yes (Death)
  Sender: FDA-Public Use
  Company Number: B0534903A

PATIENT
  Sex: Male

DRUGS (2)
  1. RETROVIR [Suspect]
     Route: 048
  2. ANTIRETROVIRAL MEDICATIONS [Suspect]
     Indication: HIV INFECTION

REACTIONS (6)
  - ANAL ABSCESS [None]
  - BONE MARROW FAILURE [None]
  - LEUKAEMIA [None]
  - MYELODYSPLASTIC SYNDROME [None]
  - PANCYTOPENIA [None]
  - REFRACTORY ANAEMIA WITH AN EXCESS OF BLASTS [None]
